FAERS Safety Report 24454301 (Version 2)
Quarter: 2024Q4

REPORT INFORMATION
  Report Type: Report from Study
  Country: JP (occurrence: JP)
  Receive Date: 20241017
  Receipt Date: 20241018
  Transmission Date: 20250115
  Serious: No
  Sender: ROCHE
  Company Number: JP-ROCHE-3433493

PATIENT
  Age: 68 Year
  Sex: Female
  Weight: 49.0 kg

DRUGS (1)
  1. RITUXAN [Suspect]
     Active Substance: RITUXIMAB
     Indication: Systemic scleroderma
     Dosage: SUBSEQUENT DOSE: 10/AUG/2022,02/MAR/2023,22/SEP/2023, 04/APR/2024
     Route: 041
     Dates: start: 20220728, end: 20230922

REACTIONS (2)
  - Infusion related reaction [Recovered/Resolved]
  - Osteonecrosis of jaw [Not Recovered/Not Resolved]

NARRATIVE: CASE EVENT DATE: 20230302
